FAERS Safety Report 9137200 (Version 1)
Quarter: 2013Q1

REPORT INFORMATION
  Report Type: Spontaneous
  Country: US (occurrence: US)
  Receive Date: 20130219
  Receipt Date: 20130219
  Transmission Date: 20140127
  Serious: No
  Sender: FDA-Public Use
  Company Number: US-BRISTOL-MYERS SQUIBB COMPANY-17138926

PATIENT
  Age: 45 Year
  Sex: Female
  Weight: 79.36 kg

DRUGS (1)
  1. ABATACEPT SUBQ INJECTION 125MG/ML [Suspect]
     Indication: RHEUMATOID ARTHRITIS
     Dosage: LAST INF: 09NOV2012
     Route: 058

REACTIONS (8)
  - Vomiting [Unknown]
  - Diarrhoea [Unknown]
  - Pyrexia [Unknown]
  - Chills [Unknown]
  - Myalgia [Unknown]
  - Pain [Unknown]
  - Drug effect decreased [Unknown]
  - Incorrect storage of drug [Unknown]
